FAERS Safety Report 4660653-X (Version None)
Quarter: 2005Q2

REPORT INFORMATION
  Report Type: 
  Country: None (occurrence: None)
  Receive Date: 20050512
  Receipt Date: 20050503
  Transmission Date: 20051028
  Serious: Yes (Other)
  Sender: FDA-Public Use
  Company Number: AU-ABBOTT-05P-008-0299914-00

PATIENT
  Age: 27 Year
  Sex: Female

DRUGS (5)
  1. LOPINAVIR/RITONAVIR [Suspect]
     Indication: HIV INFECTION
     Dosage: 800 MG/200 MG
  2. FLUTICASONE PROPIONATE+SALMETEROL XINAFOATE [Interacting]
     Indication: ASTHMA
     Dosage: 250/25
     Route: 048
  3. METHADONE HYDROCHLORIDE [Concomitant]
     Indication: DRUG ABUSER
     Dosage: MAINTENANCE
  4. BENZODIAZEPINES [Concomitant]
     Indication: DRUG ABUSER
  5. SAQUINAVIR [Concomitant]
     Indication: DRUG USE FOR UNKNOWN INDICATION

REACTIONS (5)
  - CUSHING'S SYNDROME [None]
  - DRUG INTERACTION [None]
  - HYPOTHALAMO-PITUITARY DISORDERS [None]
  - MYOPATHY [None]
  - WEIGHT INCREASED [None]
